FAERS Safety Report 5441125-1 (Version None)
Quarter: 2007Q3

REPORT INFORMATION
  Report Type: 
  Country: None (occurrence: None)
  Receive Date: 20070831
  Receipt Date: 20070820
  Transmission Date: 20080115
  Serious: Yes (Other)
  Sender: FDA-Public Use
  Company Number: JP-PFIZER INC-2007067008

PATIENT
  Age: 53 Year
  Sex: Male

DRUGS (3)
  1. GABAPEN [Suspect]
     Indication: EPILEPSY
     Dosage: DAILY DOSE:1200MG
     Route: 048
  2. PHENYTOIN SODIUM CAP [Concomitant]
  3. SELENICA-R [Concomitant]

REACTIONS (3)
  - DYSPHAGIA [None]
  - MOVEMENT DISORDER [None]
  - TONGUE DISORDER [None]
